FAERS Safety Report 18661350 (Version 1)
Quarter: 2020Q4

REPORT INFORMATION
  Report Type: Spontaneous
  Country: US (occurrence: US)
  Receive Date: 20201224
  Receipt Date: 20201224
  Transmission Date: 20210114
  Serious: Yes (Other)
  Sender: FDA-Public Use
  Company Number: None

PATIENT
  Age: 81 Year
  Sex: Female
  Weight: 54 kg

DRUGS (19)
  1. ROSUVASTATIN 5MG [Concomitant]
     Active Substance: ROSUVASTATIN
     Dates: start: 20201219
  2. ANTACID/ANTI-GAS MAX STRENGTH (ALUM + MAG HYDROXIDE/SIMETHICONE) [Concomitant]
     Dates: start: 20201217
  3. FISH OIL 1000MG [Concomitant]
  4. FAMOTIDINE 20MG [Concomitant]
     Active Substance: FAMOTIDINE
  5. LISINOPRIL 10MG [Concomitant]
     Active Substance: LISINOPRIL
  6. VITAMIN D 2000UNITS [Concomitant]
  7. PREDNISONE. [Suspect]
     Active Substance: PREDNISONE
     Indication: ASTHMA
     Route: 048
     Dates: start: 20201219, end: 20201219
  8. IPRATROPIUM/ALBUTEROL 0.5/3MG NEB VIALS [Concomitant]
     Dates: start: 20201207
  9. SALONPAS PAIN RELIEF PATCH (METHYL SALICYLATE/MENTHOL/CAMPHOR10/6/3.1% [Concomitant]
     Dates: start: 20201204
  10. MAG-OXIDE 400MG [Concomitant]
     Dates: start: 20201217
  11. ADVAIR HFA [Concomitant]
     Active Substance: FLUTICASONE PROPIONATE\SALMETEROL XINAFOATE
     Dates: start: 20201217
  12. FUROSEMIDE 20MG [Concomitant]
     Active Substance: FUROSEMIDE
  13. XARELTO [Concomitant]
     Active Substance: RIVAROXABAN
  14. TIMOLOL 0.5% OPHTH SOLN [Concomitant]
  15. LATANOPROST 0.005% OPHTH SOLN [Concomitant]
  16. OLOPATADINE 0.2% OPHTH SOLN [Concomitant]
  17. LANSOPRAZOLE 30MG [Concomitant]
     Active Substance: LANSOPRAZOLE
  18. ERYTHROMYCIN BASE 250MG [Concomitant]
     Dates: start: 20201217
  19. MONTELUKAST [Concomitant]
     Active Substance: MONTELUKAST SODIUM
     Dates: start: 20201207

REACTIONS (4)
  - Blood pressure increased [None]
  - Product quality issue [None]
  - Heart rate increased [None]
  - Blood glucose increased [None]

NARRATIVE: CASE EVENT DATE: 20201219
